FAERS Safety Report 15020693 (Version 1)
Quarter: 2018Q2

REPORT INFORMATION
  Report Type: Spontaneous
  Country: GB (occurrence: GB)
  Receive Date: 20180618
  Receipt Date: 20180618
  Transmission Date: 20180711
  Serious: Yes (Death, Other)
  Sender: FDA-Public Use
  Company Number: GB-AMGEN-GBRSP2018081230

PATIENT
  Sex: Female

DRUGS (2)
  1. INSULIN [Concomitant]
     Active Substance: INSULIN NOS
     Indication: DIABETES MELLITUS
  2. ARANESP [Suspect]
     Active Substance: DARBEPOETIN ALFA
     Indication: PRODUCT USED FOR UNKNOWN INDICATION
     Dosage: UNK
     Route: 065
     Dates: start: 201501

REACTIONS (13)
  - Hypertension [Unknown]
  - Sodium retention [Unknown]
  - Brain oedema [Unknown]
  - Gastrointestinal tube insertion [Unknown]
  - Cardiac failure congestive [Unknown]
  - Pain [Unknown]
  - Unevaluable event [Unknown]
  - Transfusion [Unknown]
  - Arrhythmia [Unknown]
  - Fluid retention [Unknown]
  - Renal failure [Fatal]
  - Cardiac arrest [Unknown]
  - Electrocardiogram QT prolonged [Unknown]
